FAERS Safety Report 6614606-2 (Version None)
Quarter: 2010Q1

REPORT INFORMATION
  Report Type: 
  Country: None (occurrence: None)
  Receive Date: 20100304
  Receipt Date: 20100224
  Transmission Date: 20100710
  Serious: Yes (Hospitalization, Other)
  Sender: FDA-Public Use
  Company Number: US-AMGEN-US383267

PATIENT
  Age: 55 Year
  Sex: Female
  Weight: 58 kg

DRUGS (3)
  1. PANITUMUMAB [Suspect]
     Indication: PANCREATIC CARCINOMA
     Route: 065
     Dates: start: 20091130, end: 20091215
  2. 5-FU [Suspect]
     Route: 042
     Dates: start: 20091130, end: 20091222
  3. RADIATION THERAPY [Suspect]
     Route: 050
     Dates: start: 20091130, end: 20091221

REACTIONS (3)
  - DEVICE RELATED INFECTION [None]
  - DIARRHOEA [None]
  - THROMBOSIS [None]
